FAERS Safety Report 8364081-5 (Version None)
Quarter: 2012Q2

REPORT INFORMATION
  Report Type: 
  Country: None (occurrence: None)
  Receive Date: 20120516
  Receipt Date: 20120306
  Transmission Date: 20120825
  Serious: Yes (Hospitalization, Other)
  Sender: FDA-Public Use
  Company Number: US-ALEXION-A201200367

PATIENT
  Sex: Male

DRUGS (3)
  1. GEMZAR [Concomitant]
     Dosage: UNK
     Dates: start: 20110726
  2. SOLIRIS [Suspect]
     Indication: HAEMOLYTIC URAEMIC SYNDROME
     Dosage: 900 MG, QW
     Route: 042
     Dates: start: 20120216
  3. TARCEVA [Concomitant]
     Dosage: UNK
     Dates: start: 20110726

REACTIONS (3)
  - HAEMOLYTIC URAEMIC SYNDROME [None]
  - CONDITION AGGRAVATED [None]
  - MYOCARDIAL INFARCTION [None]
